FAERS Safety Report 11437034 (Version 2)
Quarter: 2015Q3

REPORT INFORMATION
  Report Type: Spontaneous
  Country: US (occurrence: US)
  Receive Date: 20150821
  Receipt Date: 20150831
  Transmission Date: 20151125
  Serious: Yes (Death)
  Sender: FDA-Public Use
  Company Number: US-ELI_LILLY_AND_COMPANY-US200702001521

PATIENT
  Age: 24 Year
  Sex: Female
  Weight: 49.89 kg

DRUGS (4)
  1. CYMBALTA [Suspect]
     Active Substance: DULOXETINE HYDROCHLORIDE
     Indication: DEPRESSION
     Dosage: 30 MG, DAILY (1/D)
     Route: 048
     Dates: start: 20060717, end: 20060727
  2. CYMBALTA [Suspect]
     Active Substance: DULOXETINE HYDROCHLORIDE
     Dosage: 60 MG, DAILY (1/D)
     Route: 048
     Dates: start: 20060728
  3. KLONOPIN [Concomitant]
     Active Substance: CLONAZEPAM
  4. ANTI-ASTHMATICS [Concomitant]
     Active Substance: UNSPECIFIED INGREDIENT

REACTIONS (4)
  - Abnormal behaviour [Unknown]
  - Lid sulcus deepened [Unknown]
  - Weight decreased [Unknown]
  - Completed suicide [Fatal]

NARRATIVE: CASE EVENT DATE: 20060728
